FAERS Safety Report 5413358-1 (Version None)
Quarter: 2007Q3

REPORT INFORMATION
  Report Type: 
  Country: None (occurrence: None)
  Receive Date: 20070810
  Receipt Date: 20070802
  Transmission Date: 20080115
  Serious: Yes (Death, Hospitalization)
  Sender: FDA-Public Use
  Company Number: 2007BI010362

PATIENT
  Age: 35 Year
  Sex: Male

DRUGS (1)
  1. NATALIZUMAB [Suspect]
     Indication: MULTIPLE SCLEROSIS
     Dosage: 300 MG QM IV
     Route: 042
     Dates: start: 20061016, end: 20070403

REACTIONS (5)
  - FALL [None]
  - HIP FRACTURE [None]
  - LOWER LIMB FRACTURE [None]
  - SUDDEN DEATH [None]
  - THROMBOSIS [None]
